FAERS Safety Report 7203885-9 (Version None)
Quarter: 2010Q4

REPORT INFORMATION
  Report Type: 
  Country: None (occurrence: None)
  Receive Date: 20101217
  Receipt Date: 20101130
  Transmission Date: 20110411
  Serious: Yes (Other)
  Sender: FDA-Public Use
  Company Number: PIR#1011010D

PATIENT
  Sex: Male
  Weight: 111.5849 kg

DRUGS (1)
  1. HEPARIN [Suspect]

REACTIONS (1)
  - THROMBOSIS IN DEVICE [None]
